FAERS Safety Report 10931062 (Version 2)
Quarter: 2015Q2

REPORT INFORMATION
  Report Type: Other
  Country: JP (occurrence: JP)
  Receive Date: 20150319
  Receipt Date: 20150521
  Transmission Date: 20150821
  Serious: Yes (Life-Threatening)
  Sender: FDA-Public Use
  Company Number: JP-DSJP-DSJ-2015-108266

PATIENT

DRUGS (5)
  1. TRAMCET [Suspect]
     Active Substance: ACETAMINOPHEN\TRAMADOL
     Dosage: 4DF/DAY
     Route: 065
     Dates: start: 20150218, end: 20150227
  2. PERAPRIN [Suspect]
     Active Substance: METOCLOPRAMIDE
     Dosage: 20MG/DAY
     Route: 065
     Dates: start: 20150217, end: 20150223
  3. CELECOX [Suspect]
     Active Substance: CELECOXIB
     Dosage: 200MG/DAY
     Route: 065
     Dates: end: 20150227
  4. LIXIANA TABLETS 15MG [Suspect]
     Active Substance: EDOXABAN TOSILATE MONOHYDRATE
     Indication: HIP ARTHROPLASTY
     Dosage: 15 MG, QD
     Route: 048
     Dates: start: 20150217, end: 20150226
  5. NEXIUM [Suspect]
     Active Substance: ESOMEPRAZOLE MAGNESIUM
     Dosage: 20MG/DAY
     Route: 065
     Dates: start: 20150221, end: 20150227

REACTIONS (1)
  - Lung disorder [Recovering/Resolving]

NARRATIVE: CASE EVENT DATE: 20150226
